FAERS Safety Report 4675250-X (Version None)
Quarter: 2005Q2

REPORT INFORMATION
  Report Type: 
  Country: None (occurrence: None)
  Receive Date: 20050527
  Receipt Date: 20050523
  Transmission Date: 20051028
  Serious: Yes (Disabling, Other)
  Sender: FDA-Public Use
  Company Number: PHBS2005CY07269

PATIENT
  Age: 65 Year
  Sex: Female

DRUGS (10)
  1. ZOMETA [Suspect]
     Indication: MULTIPLE MYELOMA
     Dosage: 4 MG, QMO
     Route: 042
     Dates: start: 20010731, end: 20031024
  2. ZOMETA [Suspect]
     Dosage: 4 MG, QMO
     Route: 042
     Dates: start: 20040512, end: 20041101
  3. ZOMETA [Suspect]
     Dosage: 3 MG, QMO
     Route: 042
     Dates: start: 20041220
  4. ZOMETA [Suspect]
     Indication: MULTIPLE MYELOMA
     Dosage: 90 MG, QMO
     Route: 065
     Dates: start: 20000822, end: 20010703
  5. FLUCONAZOLE [Concomitant]
     Dosage: 100 MG/D
  6. PENICILLIN [Concomitant]
     Dosage: 200 MG, BID
  7. SEPTRA [Concomitant]
     Dosage: 3 TIMES/WEEK
  8. ZOVIRAX [Concomitant]
     Dosage: 400 MG, BID
  9. THYROXIN [Concomitant]
     Dosage: 100 MG, QD
  10. EPOETIN NOS [Concomitant]
     Dosage: 4000 IU 3 TIMES A WEEK

REACTIONS (3)
  - ASEPTIC NECROSIS BONE [None]
  - HAEMORRHAGE [None]
  - TOOTH EXTRACTION [None]
